FAERS Safety Report 14368684 (Version 1)
Quarter: 2018Q1

REPORT INFORMATION
  Report Type: Spontaneous
  Country: US (occurrence: US)
  Receive Date: 20180109
  Receipt Date: 20180109
  Transmission Date: 20180509
  Serious: No
  Sender: FDA-Public Use
  Company Number: US-PFIZER INC-2016551809

PATIENT
  Age: 79 Year
  Sex: Male

DRUGS (20)
  1. MYCOSTATIN [Concomitant]
     Active Substance: NYSTATIN
     Dosage: UNK, 3X/DAY
     Route: 061
  2. ZOFRAN [Concomitant]
     Active Substance: ONDANSETRON HYDROCHLORIDE
     Indication: NAUSEA
     Dosage: 8 MG, AS NEEDED (1 TABLET EVERY 8 HOURS)
     Route: 048
  3. COMPAZINE [Concomitant]
     Active Substance: PROCHLORPERAZINE MALEATE
     Indication: NAUSEA
     Dosage: 10 MG, AS NEEDED (TAKE 1 TABLET BY MOUTH EVERY 6 HOURS)
     Route: 048
  4. NORCO [Concomitant]
     Active Substance: ACETAMINOPHEN\HYDROCODONE BITARTRATE
     Indication: PAIN
     Dosage: UNK, AS NEEDED (EVERY 6 (SIX) HOURS) [(HYDROCODONE BITARTRATE: 5 MG), (PARACETAMOL: 325 MG)]
     Route: 048
  5. NIACIN. [Concomitant]
     Active Substance: NIACIN
     Dosage: 2000 MG, DAILY
     Route: 048
  6. SYNTHROID [Concomitant]
     Active Substance: LEVOTHYROXINE SODIUM
     Dosage: 50 UG, DAILY
     Route: 048
  7. LEVOTHROID [Concomitant]
     Active Substance: LEVOTHYROXINE SODIUM
     Dosage: 50 UG, DAILY
     Route: 048
  8. NYSTATIN. [Concomitant]
     Active Substance: NYSTATIN
     Dosage: UNK, 3X/DAY
     Route: 061
  9. OXYCONTIN [Concomitant]
     Active Substance: OXYCODONE HYDROCHLORIDE
     Indication: PAIN
     Dosage: UNK
  10. VITAMIN D3 [Concomitant]
     Active Substance: CHOLECALCIFEROL
     Dosage: UNK, DAILY
     Route: 048
  11. ZOFRAN [Concomitant]
     Active Substance: ONDANSETRON HYDROCHLORIDE
     Indication: VOMITING
  12. NIACINAMIDE [Concomitant]
     Active Substance: NIACINAMIDE
     Dosage: 2000 MG, DAILY
     Route: 048
  13. COMPAZINE [Concomitant]
     Active Substance: PROCHLORPERAZINE MALEATE
     Indication: VOMITING
  14. THERAGRAN [Concomitant]
     Active Substance: VITAMINS
     Dosage: UNK, DAILY
     Route: 048
  15. ZINC ACETATE [Concomitant]
     Active Substance: ZINC ACETATE
     Dosage: UNK, DAILY
     Route: 048
  16. INLYTA [Suspect]
     Active Substance: AXITINIB
     Indication: RENAL CANCER
     Dosage: 5 MG, 2X/DAY (BID X 14 DAYS)
     Route: 048
     Dates: start: 2017, end: 201711
  17. INLYTA [Suspect]
     Active Substance: AXITINIB
     Indication: RENAL CELL CARCINOMA STAGE IV
     Dosage: 3 MG, 2X/DAY (1MG THREE TABLETS)
     Route: 048
     Dates: start: 201711
  18. ASPIRIN. [Concomitant]
     Active Substance: ASPIRIN
     Dosage: 81 MG, DAILY
     Route: 048
  19. LIPITOR [Concomitant]
     Active Substance: ATORVASTATIN CALCIUM
     Dosage: 80 MG, DAILY
     Route: 048
  20. ACIDOPHILUS PROBIOTIC [Concomitant]
     Dosage: UNK, DAILY
     Route: 048

REACTIONS (3)
  - Weight decreased [Recovered/Resolved]
  - Diarrhoea [Recovering/Resolving]
  - Constipation [Unknown]

NARRATIVE: CASE EVENT DATE: 2017
